FAERS Safety Report 15035211 (Version 1)
Quarter: 2018Q2

REPORT INFORMATION
  Report Type: Report from Study
  Country: DE (occurrence: DE)
  Receive Date: 20180620
  Receipt Date: 20180620
  Transmission Date: 20180711
  Serious: Yes (Other)
  Sender: FDA-Public Use
  Company Number: DE-BRISTOL-MYERS SQUIBB COMPANY-BMS-2018-056078

PATIENT

DRUGS (1)
  1. APIXABAN [Suspect]
     Active Substance: APIXABAN
     Indication: PRODUCT USED FOR UNKNOWN INDICATION
     Dosage: UNK
     Route: 065

REACTIONS (7)
  - Deep vein thrombosis [Unknown]
  - Nausea [Unknown]
  - Pulmonary embolism [Unknown]
  - Vomiting [Unknown]
  - Acute coronary syndrome [Unknown]
  - Pyrexia [Unknown]
  - Hypertension [Unknown]

NARRATIVE: CASE EVENT DATE: 20171225
